FAERS Safety Report 20635080 (Version 1)
Quarter: 2022Q1

REPORT INFORMATION
  Report Type: Spontaneous
  Country: IT (occurrence: IT)
  Receive Date: 20220325
  Receipt Date: 20220325
  Transmission Date: 20220423
  Serious: Yes (Other)
  Sender: FDA-Public Use
  Company Number: None

PATIENT
  Age: 72 Year
  Sex: Male

DRUGS (1)
  1. ENOXAPARIN SODIUM [Suspect]
     Active Substance: ENOXAPARIN SODIUM
     Indication: Atrial fibrillation
     Dosage: 6000 MG, QD
     Route: 058
     Dates: start: 20210125, end: 20210424

REACTIONS (2)
  - Atrial fibrillation [Unknown]
  - Melaena [Unknown]

NARRATIVE: CASE EVENT DATE: 20210325
